FAERS Safety Report 23684179 (Version 3)
Quarter: 2024Q2

REPORT INFORMATION
  Report Type: Spontaneous
  Country: ES (occurrence: ES)
  Receive Date: 20240328
  Receipt Date: 20240502
  Transmission Date: 20240716
  Serious: Yes (Hospitalization, Disabling, Other)
  Sender: FDA-Public Use
  Company Number: ES-LUNDBECK-DKLU3075923

PATIENT
  Age: 51 Year
  Sex: Female

DRUGS (3)
  1. BRINTELLIX [Suspect]
     Active Substance: VORTIOXETINE HYDROBROMIDE
     Indication: Product used for unknown indication
     Dosage: UNK
     Route: 065
     Dates: start: 201709
  2. BRINTELLIX [Suspect]
     Active Substance: VORTIOXETINE HYDROBROMIDE
     Dosage: 5 MILLIGRAM, QD
     Route: 065
     Dates: start: 2022
  3. CANNABIS SATIVA SUBSP. INDICA TOP [Suspect]
     Active Substance: CANNABIS SATIVA SUBSP. INDICA TOP
     Indication: Product used for unknown indication
     Dosage: UNK
     Route: 065
     Dates: start: 20231231

REACTIONS (22)
  - Serotonin syndrome [Not Recovered/Not Resolved]
  - Brain injury [Unknown]
  - Seizure [Unknown]
  - Mental impairment [Unknown]
  - Pain in extremity [Recovered/Resolved]
  - Pain [Unknown]
  - Condition aggravated [Unknown]
  - Depression [Unknown]
  - Malaise [Unknown]
  - Hypertension [Unknown]
  - Mental fatigue [Not Recovered/Not Resolved]
  - Speech disorder [Unknown]
  - Fatigue [Unknown]
  - Hypoaesthesia [Unknown]
  - Fall [Unknown]
  - Impaired driving ability [Unknown]
  - Nausea [Recovered/Resolved]
  - Therapy cessation [Unknown]
  - Loss of personal independence in daily activities [Unknown]
  - Adverse reaction [Not Recovered/Not Resolved]
  - Hypersensitivity [Unknown]
  - Dizziness [Unknown]

NARRATIVE: CASE EVENT DATE: 20170101
